FAERS Safety Report 5481235-6 (Version None)
Quarter: 2007Q4

REPORT INFORMATION
  Report Type: 
  Country: None (occurrence: None)
  Receive Date: 20071010
  Receipt Date: 20071001
  Transmission Date: 20080405
  Serious: Yes (Other)
  Sender: FDA-Public Use
  Company Number: PHBS2007JP15215

PATIENT
  Age: 12 Year
  Sex: Male

DRUGS (2)
  1. RITALIN [Suspect]
     Indication: ASPERGER'S DISORDER
     Dosage: 27.5 MG/D
     Route: 048
     Dates: start: 20070813, end: 20070819
  2. TEGRETOL [Suspect]
     Indication: COMPLEX PARTIAL SEIZURES
     Dosage: 400 MG/D
     Route: 048
     Dates: start: 20070803, end: 20070828

REACTIONS (9)
  - ALANINE AMINOTRANSFERASE INCREASED [None]
  - ASPARTATE AMINOTRANSFERASE INCREASED [None]
  - DRUG ERUPTION [None]
  - DRUG RASH WITH EOSINOPHILIA AND SYSTEMIC SYMPTOMS [None]
  - EOSINOPHIL COUNT INCREASED [None]
  - HEPATIC FUNCTION ABNORMAL [None]
  - LYMPHADENOPATHY [None]
  - PRURITUS [None]
  - SKIN EXFOLIATION [None]
